FAERS Safety Report 12345668 (Version 2)
Quarter: 2016Q2

REPORT INFORMATION
  Report Type: Report from Study
  Country: US (occurrence: US)
  Receive Date: 20160509
  Receipt Date: 20160530
  Transmission Date: 20160815
  Serious: No
  Sender: FDA-Public Use
  Company Number: US-GILEAD-2016-0209822

PATIENT
  Age: 81 Year
  Sex: Female
  Weight: 70 kg

DRUGS (17)
  1. PREDNISONE. [Concomitant]
     Active Substance: PREDNISONE
  2. SODIUM CHLORIDE. [Concomitant]
     Active Substance: SODIUM CHLORIDE
  3. ACETAMINOPHEN. [Concomitant]
     Active Substance: ACETAMINOPHEN
  4. TRAMADOL. [Concomitant]
     Active Substance: TRAMADOL
  5. ATROPINE. [Concomitant]
     Active Substance: ATROPINE
  6. SENNA LAXATIVE AND DOCUSATE SODIUM [Concomitant]
  7. DEXTROSE. [Concomitant]
     Active Substance: DEXTROSE
  8. HEPARIN [Concomitant]
     Active Substance: HEPARIN SODIUM
  9. INSULIN HUMAN PROTAMIN-INJECTION [Concomitant]
  10. POLYETHYLENE GLYCOL 3350. [Concomitant]
     Active Substance: POLYETHYLENE GLYCOL 3350
  11. GLUCAGON. [Concomitant]
     Active Substance: GLUCAGON
  12. MILK OF MAGNESIA [Concomitant]
     Active Substance: MAGNESIUM HYDROXIDE
  13. AMBRISENTAN [Suspect]
     Active Substance: AMBRISENTAN
     Indication: PULMONARY ARTERIAL HYPERTENSION
     Dosage: 5 MG, QD
     Route: 048
     Dates: start: 201604
  14. TADALAFIL [Concomitant]
     Active Substance: TADALAFIL
  15. ASPIRIN                            /00002701/ [Concomitant]
     Active Substance: ASPIRIN
  16. SILDENAFIL. [Concomitant]
     Active Substance: SILDENAFIL
  17. AMLODIPINE [Concomitant]
     Active Substance: AMLODIPINE BESYLATE

REACTIONS (2)
  - Feeling hot [Unknown]
  - Flushing [Unknown]

NARRATIVE: CASE EVENT DATE: 20160419
